FAERS Safety Report 21988813 (Version 1)
Quarter: 2023Q1

REPORT INFORMATION
  Report Type: Report from Study
  Country: IL (occurrence: IL)
  Receive Date: 20230214
  Receipt Date: 20230214
  Transmission Date: 20230418
  Serious: Yes (Other)
  Sender: FDA-Public Use
  Company Number: IL-JNJFOC-20230215347

PATIENT

DRUGS (2)
  1. CANAGLIFLOZIN [Suspect]
     Active Substance: CANAGLIFLOZIN
     Indication: Type 2 diabetes mellitus
     Route: 048
  2. METFORMIN [Concomitant]
     Active Substance: METFORMIN HYDROCHLORIDE
     Indication: Product used for unknown indication
     Route: 065

REACTIONS (13)
  - Fournier^s gangrene [Unknown]
  - Diabetic ketoacidosis [Unknown]
  - Fracture [Unknown]
  - Syncope [Unknown]
  - Hyperkalaemia [Unknown]
  - Amputation [Unknown]
  - Acute kidney injury [Unknown]
  - Nocturia [Unknown]
  - Hypotension [Unknown]
  - Hypoglycaemia [Unknown]
  - Dehydration [Unknown]
  - Genitourinary tract infection [Unknown]
  - Fall [Unknown]
